FAERS Safety Report 7904941-X (Version None)
Quarter: 2011Q4

REPORT INFORMATION
  Report Type: 
  Country: None (occurrence: None)
  Receive Date: 20111108
  Receipt Date: 20111025
  Transmission Date: 20120403
  Serious: Yes (Hospitalization, Other)
  Sender: FDA-Public Use
  Company Number: 2011MA016001

PATIENT
  Age: 83 Year
  Sex: Male

DRUGS (6)
  1. CHLORPROMAZINE [Concomitant]
  2. CITALOPRAM HYDROBROMIDE [Suspect]
     Indication: DEPRESSION
     Dosage: 20 MG;QD;
  3. ASPIRIN [Concomitant]
  4. INSULIN GLARGINE [Concomitant]
  5. FUROSEMIDE [Concomitant]
  6. BISOPROLOL [Concomitant]

REACTIONS (1)
  - HEPATOTOXICITY [None]
